FAERS Safety Report 6446474-6 (Version None)
Quarter: 2009Q4

REPORT INFORMATION
  Report Type: 
  Country: None (occurrence: None)
  Receive Date: 20091119
  Receipt Date: 20091113
  Transmission Date: 20100525
  Serious: Yes (Death, Hospitalization, Other)
  Sender: FDA-Public Use
  Company Number: PHHY2009JP07950

PATIENT
  Sex: Male

DRUGS (27)
  1. AMN107 AMN+CAP [Suspect]
     Indication: CHRONIC MYELOID LEUKAEMIA
     Dosage: 200 MG/DAY
     Route: 048
     Dates: start: 20090227, end: 20090227
  2. AMN107 AMN+CAP [Suspect]
     Dosage: 400 MG/DAY
     Route: 048
     Dates: start: 20090228, end: 20090301
  3. AMN107 AMN+CAP [Suspect]
     Dosage: 200 MG/DAY
     Route: 048
     Dates: start: 20090302, end: 20090303
  4. AMN107 AMN+CAP [Suspect]
     Dosage: 400 MG/DAY
     Route: 048
     Dates: start: 20090304, end: 20090305
  5. AMN107 AMN+CAP [Suspect]
     Dosage: 200 MG/DAY
     Route: 048
     Dates: start: 20090306, end: 20090306
  6. AMN107 AMN+CAP [Suspect]
     Dosage: 200 MG/DAY
     Route: 048
     Dates: start: 20090309, end: 20090309
  7. AMN107 AMN+CAP [Suspect]
     Dosage: 400 MG/DAY
     Route: 048
     Dates: start: 20090310, end: 20090315
  8. AMN107 AMN+CAP [Suspect]
     Dosage: 600 MG/DAY
     Route: 048
     Dates: start: 20090316, end: 20090316
  9. AMN107 AMN+CAP [Suspect]
     Dosage: 600 MG/DAY
     Route: 048
     Dates: start: 20090318, end: 20090319
  10. AMN107 AMN+CAP [Suspect]
     Dosage: 800 MG/DAY
     Route: 048
     Dates: start: 20090320, end: 20090323
  11. AMN107 AMN+CAP [Suspect]
     Dosage: 400 MG/DAY
     Route: 048
     Dates: start: 20090324, end: 20090325
  12. AMN107 AMN+CAP [Suspect]
     Dosage: 800 MG/DAY
     Dates: start: 20090326, end: 20090406
  13. AMN107 AMN+CAP [Suspect]
     Dosage: 400 MG/DAY
     Route: 048
     Dates: start: 20090407, end: 20090427
  14. AMN107 AMN+CAP [Suspect]
     Dosage: 800 MG/DAY
     Route: 048
     Dates: start: 20090428, end: 20090501
  15. ZOSYN [Suspect]
     Dosage: 18 G DAILY
     Route: 042
     Dates: start: 20090313, end: 20090316
  16. AMLODIPINE [Concomitant]
     Route: 048
  17. BLOPRESS [Concomitant]
     Route: 048
  18. GLEEVEC [Concomitant]
     Indication: CHRONIC MYELOID LEUKAEMIA
     Dosage: 400 MG
     Route: 048
     Dates: start: 20011201, end: 20060301
  19. GLEEVEC [Concomitant]
     Dosage: 500 MG
     Route: 048
     Dates: start: 20060401, end: 20070101
  20. GLEEVEC [Concomitant]
     Dosage: 800 MG
     Route: 048
     Dates: start: 20070401, end: 20070501
  21. GLEEVEC [Concomitant]
     Dosage: 400 MG
     Route: 048
     Dates: start: 20070601, end: 20081124
  22. HYDREA [Concomitant]
     Indication: CHRONIC MYELOID LEUKAEMIA
     Dosage: 500 MG
     Route: 048
     Dates: start: 20081125, end: 20090227
  23. THYRADIN S [Concomitant]
     Dosage: 150 UG
     Route: 048
  24. MICARDIS [Concomitant]
     Dosage: 80 MG
     Route: 048
  25. ADALAT CC [Concomitant]
     Dosage: 40 MG
     Route: 048
  26. LASIX [Concomitant]
     Dosage: 80 MG
     Route: 048
  27. GASMOTIN [Concomitant]
     Dosage: 15 MG
     Route: 048

REACTIONS (22)
  - ASCITES [None]
  - ATRIAL FIBRILLATION [None]
  - BRADYCARDIA [None]
  - CARDIAC FAILURE [None]
  - CARDIAC TAMPONADE [None]
  - CATHETERISATION CARDIAC [None]
  - CONVULSION [None]
  - DECREASED APPETITE [None]
  - ELECTROCARDIOGRAM QT PROLONGED [None]
  - GASTROINTESTINAL HAEMORRHAGE [None]
  - HAEMOGLOBIN DECREASED [None]
  - HEPATIC ISCHAEMIA [None]
  - HYPERKALAEMIA [None]
  - ISCHAEMIC HEPATITIS [None]
  - PARACENTESIS [None]
  - PEPTIC ULCER [None]
  - PERICARDIAL EFFUSION [None]
  - PERICARDITIS [None]
  - PLEURAL EFFUSION [None]
  - PLEURISY [None]
  - SHOCK [None]
  - THORACIC CAVITY DRAINAGE [None]
